FAERS Safety Report 24252764 (Version 3)
Quarter: 2024Q3

REPORT INFORMATION
  Report Type: Spontaneous
  Country: US (occurrence: US)
  Receive Date: 20240827
  Receipt Date: 20240921
  Transmission Date: 20241016
  Serious: Yes (Hospitalization)
  Sender: ROCHE
  Company Number: US-ROCHE-10000060851

PATIENT
  Age: 76 Year
  Sex: Male

DRUGS (3)
  1. VABYSMO [Suspect]
     Active Substance: FARICIMAB\FARICIMAB-SVOA
     Indication: Diabetic retinal oedema
     Route: 050
     Dates: start: 20240627
  2. VITAMIN D [Concomitant]
     Active Substance: VITAMIN D NOS
  3. BERBERINE [Concomitant]
     Active Substance: BERBERINE

REACTIONS (3)
  - Cerebrovascular accident [Not Recovered/Not Resolved]
  - Amnesia [Recovered/Resolved]
  - Off label use [Unknown]

NARRATIVE: CASE EVENT DATE: 20240627
